FAERS Safety Report 8951016 (Version 3)
Quarter: 2013Q3

REPORT INFORMATION
  Report Type: Spontaneous
  Country: US (occurrence: None)
  Receive Date: 20121113
  Receipt Date: 20130710
  Transmission Date: 20140515
  Serious: Yes (Life-Threatening, Hospitalization)
  Sender: FDA-Public Use
  Company Number: 2012PROUSA02244

PATIENT
  Age: 77 Year
  Sex: Male
  Weight: 119.7 kg

DRUGS (9)
  1. PROVENGE [Suspect]
     Indication: PROSTATE CANCER METASTATIC
     Route: 042
     Dates: start: 20120920, end: 20120920
  2. VALSARTAN (VALSARTAN) [Concomitant]
  3. HYDROCHLOROTHIAZIDE (HYDROCHLOROTHIAZIDE) [Concomitant]
  4. ATORVASTATIN (ATORVASTATIN CALCIUM) [Concomitant]
  5. ALBUTEROL (SALBUTAMOL SULFATE) [Concomitant]
  6. FLUTICASONE (FLUTICASONE PROPIONATE) [Concomitant]
  7. LATANOPROST (LATANOPROST) [Concomitant]
  8. LEUPROLIDE ACETATE (LEUPRORELIN ACETATE) [Concomitant]
  9. SIMVASTATIN (SIMVASTATIN) [Concomitant]

REACTIONS (4)
  - Pulmonary embolism [None]
  - Chills [None]
  - Body temperature increased [None]
  - Sinus tachycardia [None]
